FAERS Safety Report 8421613-6 (Version None)
Quarter: 2012Q2

REPORT INFORMATION
  Report Type: 
  Country: None (occurrence: None)
  Receive Date: 20120608
  Receipt Date: 20120605
  Transmission Date: 20120825
  Serious: Yes (Other)
  Sender: FDA-Public Use
  Company Number: US-PFIZER INC-2012086392

PATIENT
  Sex: Female

DRUGS (17)
  1. TOPAMAX [Suspect]
     Dosage: 20 MG, UNK
  2. CYMBALTA [Suspect]
     Dosage: UNK
  3. LISINOPRIL [Concomitant]
     Dosage: 20/25
  4. FISH OIL [Concomitant]
  5. MIRALAX [Concomitant]
  6. NEURONTIN [Suspect]
     Dosage: 1200 MG, 3X/DAY
     Dates: start: 20040401
  7. THORAZINE [Suspect]
     Indication: MENTAL DISORDER
     Dosage: UNK, DAILY
     Dates: start: 20120401, end: 20120101
  8. GEODON [Suspect]
     Dosage: UNK
  9. LITHIUM CARBONATE [Suspect]
     Dosage: UNK
  10. KLONOPIN [Concomitant]
     Dosage: UNK
  11. CYMBALTA [Suspect]
     Dosage: 120 MG, UNK
  12. PREVACID [Concomitant]
     Dosage: 30 MG, UNK
  13. TOPAMAX [Suspect]
     Dosage: UNK
  14. PRAVACHOL [Concomitant]
  15. SYNTHROID [Concomitant]
     Dosage: 120 MCG, UNK
  16. ALLOPURINOL [Concomitant]
     Dosage: 300 MG, UNK
  17. LASIX [Concomitant]
     Dosage: 80 MG, UNK

REACTIONS (7)
  - MENTAL IMPAIRMENT [None]
  - DYSPNOEA [None]
  - DYSARTHRIA [None]
  - HYPOAESTHESIA [None]
  - TRANSIENT ISCHAEMIC ATTACK [None]
  - MENTAL DISORDER [None]
  - ASTHENIA [None]
